FAERS Safety Report 7292336-4 (Version None)
Quarter: 2011Q1

REPORT INFORMATION
  Report Type: 
  Country: None (occurrence: None)
  Receive Date: 20110202
  Receipt Date: 20110124
  Transmission Date: 20110831
  Serious: Yes (Other)
  Sender: FDA-Public Use
  Company Number: DSA_44581_2010

PATIENT
  Sex: Male

DRUGS (8)
  1. REMERON [Concomitant]
  2. APRESAZIDE [Concomitant]
  3. ZYPREXA [Suspect]
     Dosage: (5 MG QHS ORAL)
     Route: 048
  4. MENTAX [Concomitant]
  5. XENAZINE [Suspect]
     Indication: HUNTINGTON'S DISEASE
     Dosage: (37.5 MG BID ORAL), (TAPERING DOSE ORAL), (12.5 MG QD ORAL)
     Route: 048
     Dates: start: 20100601, end: 20100101
  6. XENAZINE [Suspect]
     Indication: HUNTINGTON'S DISEASE
     Dosage: (37.5 MG BID ORAL), (TAPERING DOSE ORAL), (12.5 MG QD ORAL)
     Route: 048
     Dates: start: 20100101, end: 20100101
  7. XENAZINE [Suspect]
     Indication: HUNTINGTON'S DISEASE
     Dosage: (37.5 MG BID ORAL), (TAPERING DOSE ORAL), (12.5 MG QD ORAL)
     Route: 048
     Dates: start: 20100101
  8. CELEXA [Concomitant]

REACTIONS (3)
  - RESTLESSNESS [None]
  - ANXIETY [None]
  - AKATHISIA [None]
